FAERS Safety Report 21044320 (Version 1)
Quarter: 2022Q3

REPORT INFORMATION
  Report Type: Spontaneous
  Country: US (occurrence: None)
  Receive Date: 20220703
  Receipt Date: 20220703
  Transmission Date: 20221027
  Serious: Yes (Other)
  Sender: FDA-Public Use
  Company Number: None

PATIENT
  Age: 71 Year
  Sex: 0
  Weight: 67.5 kg

DRUGS (15)
  1. ERBITUX [Suspect]
     Active Substance: CETUXIMAB
     Indication: Squamous cell carcinoma of the hypopharynx
     Dosage: OTHER FREQUENCY : ONCE WEEKLY;?
     Route: 042
     Dates: start: 20220429
  2. CARVEDILOL [Concomitant]
     Active Substance: CARVEDILOL
  3. PRAVASTATIN [Concomitant]
     Active Substance: PRAVASTATIN
  4. APIXABAN [Concomitant]
     Active Substance: APIXABAN
  5. TAMSULOSIN [Concomitant]
     Active Substance: TAMSULOSIN
  6. DUTASTERIDE [Concomitant]
     Active Substance: DUTASTERIDE
  7. LISINOPRIL [Concomitant]
     Active Substance: LISINOPRIL
  8. CAPECITABINE [Concomitant]
     Active Substance: CAPECITABINE
  9. CARBOPLATIN [Concomitant]
     Active Substance: CARBOPLATIN
  10. DULOXETINE [Concomitant]
     Active Substance: DULOXETINE
  11. DOXYCYCLINE [Concomitant]
     Active Substance: DOXYCYCLINE
  12. DIETARY SUPPLEMENT\HERBALS\MILK THISTLE [Concomitant]
     Active Substance: DIETARY SUPPLEMENT\HERBALS\MILK THISTLE
  13. VITAMINS [Concomitant]
     Active Substance: VITAMINS
  14. FISH OIL [Concomitant]
     Active Substance: FISH OIL
  15. SENNA LAXATIVE [Concomitant]

REACTIONS (2)
  - Scrotal inflammation [None]
  - Eczema [None]

NARRATIVE: CASE EVENT DATE: 20220620
